FAERS Safety Report 6028467-6 (Version None)
Quarter: 2008Q4

REPORT INFORMATION
  Report Type: 
  Country: None (occurrence: None)
  Receive Date: 20081222
  Receipt Date: 20081023
  Transmission Date: 20090506
  Serious: No
  Sender: FDA-Public Use
  Company Number: US-WYE-H06542208

PATIENT
  Age: 54 Year
  Sex: Male

DRUGS (6)
  1. PRISTIQ [Suspect]
     Indication: DEPRESSION
     Dosage: 50 MG 1X PER 1 DAY, ORAL
     Route: 048
     Dates: start: 20081001
  2. WELLBUTRIN [Concomitant]
  3. PLAVIX [Concomitant]
  4. PREVACID [Concomitant]
  5. AVALIDE [Concomitant]
  6. ALLEGRA [Concomitant]

REACTIONS (5)
  - CONDITION AGGRAVATED [None]
  - CONSTIPATION [None]
  - DIZZINESS [None]
  - DRY MOUTH [None]
  - PANIC ATTACK [None]
